FAERS Safety Report 7651556-7 (Version None)
Quarter: 2011Q3

REPORT INFORMATION
  Report Type: 
  Country: None (occurrence: None)
  Receive Date: 20110802
  Receipt Date: 20110802
  Transmission Date: 20111222
  Serious: Yes (Other)
  Sender: FDA-Public Use
  Company Number: PHHO2006GB09391

PATIENT
  Sex: Female
  Weight: 56 kg

DRUGS (2)
  1. LESCOL [Suspect]
     Indication: OSTEOPOROSIS POSTMENOPAUSAL
     Dosage: DOUBLE BLIND
     Route: 048
     Dates: start: 20060524, end: 20060526
  2. ZOLEDRONOC ACID [Suspect]
     Indication: OSTEOPOROSIS POSTMENOPAUSAL
     Dosage: 5 MG, ONCE/SINGLE
     Route: 042
     Dates: start: 20060524, end: 20060524

REACTIONS (9)
  - EYE INFLAMMATION [None]
  - LACRIMATION INCREASED [None]
  - IRIDOCYCLITIS [None]
  - EYE IRRITATION [None]
  - HEADACHE [None]
  - VISION BLURRED [None]
  - PHOTOPHOBIA [None]
  - EYE PAIN [None]
  - OCULAR HYPERAEMIA [None]
